FAERS Safety Report 10072833 (Version 1)
Quarter: 2014Q2

REPORT INFORMATION
  Report Type: Spontaneous
  Country: US (occurrence: US)
  Receive Date: 20140411
  Receipt Date: 20140411
  Transmission Date: 20141212
  Serious: Yes (Other)
  Sender: FDA-Public Use
  Company Number: US-BEH-2014041641

PATIENT
  Sex: Female

DRUGS (2)
  1. HIZENTRA [Suspect]
     Dosage: STARTED IN 2011
     Route: 058
     Dates: start: 20130821, end: 20130821
  2. HIZENTRA [Suspect]
     Indication: IMMUNODEFICIENCY COMMON VARIABLE
     Dosage: STARTED IN 2011.
     Route: 058
     Dates: start: 20130821, end: 20130821

REACTIONS (1)
  - Rheumatoid arthritis [Unknown]
